FAERS Safety Report 6699475-7 (Version None)
Quarter: 2010Q2

REPORT INFORMATION
  Report Type: 
  Country: None (occurrence: None)
  Receive Date: 20100426
  Receipt Date: 20100415
  Transmission Date: 20101027
  Serious: Yes (Hospitalization)
  Sender: FDA-Public Use
  Company Number: 1000013220

PATIENT
  Age: 88 Year
  Sex: Female

DRUGS (7)
  1. NAMENDA [Suspect]
     Indication: DEMENTIA ALZHEIMER'S TYPE
     Dosage: 20 MG (10 MG, 2 IN 1 D), ORAL
     Route: 048
     Dates: start: 20090101, end: 20100414
  2. LISINOPRIL [Concomitant]
  3. CLONIDINE [Concomitant]
  4. HYDROCHLOROTHIAZIDE [Concomitant]
  5. PLAVIX [Concomitant]
  6. ARICEPT [Concomitant]
  7. WATER PILL (NOS)(TABLETS) [Concomitant]

REACTIONS (7)
  - ASTHENIA [None]
  - BLOOD MAGNESIUM DECREASED [None]
  - BLOOD POTASSIUM DECREASED [None]
  - BLOOD SODIUM DECREASED [None]
  - PULMONARY OEDEMA [None]
  - RENAL IMPAIRMENT [None]
  - URINARY RETENTION [None]
